FAERS Safety Report 6924350-X (Version None)
Quarter: 2010Q3

REPORT INFORMATION
  Report Type: 
  Country: None (occurrence: None)
  Receive Date: 20100811
  Receipt Date: 20100811
  Transmission Date: 20110219
  Serious: Yes (Other)
  Sender: FDA-Public Use
  Company Number: None

PATIENT
  Sex: Female
  Weight: 69.8539 kg

DRUGS (1)
  1. PERMETHRIN [Suspect]
     Indication: ACARODERMATITIS
     Dosage: TOPICALLY
     Route: 061
     Dates: start: 20081003

REACTIONS (1)
  - RASH PRURITIC [None]
